APPROVED DRUG PRODUCT: METARAMINOL BITARTRATE
Active Ingredient: METARAMINOL BITARTRATE
Strength: EQ 20MG BASE/ML
Dosage Form/Route: INJECTABLE;INJECTION
Application: A086418 | Product #002
Applicant: GD SEARLE LLC
Approved: Approved Prior to Jan 1, 1982 | RLD: No | RS: No | Type: DISCN